FAERS Safety Report 6759284-7 (Version None)
Quarter: 2010Q2

REPORT INFORMATION
  Report Type: 
  Country: None (occurrence: None)
  Receive Date: 20100607
  Receipt Date: 20100603
  Transmission Date: 20101027
  Serious: Yes (Other)
  Sender: FDA-Public Use
  Company Number: JP-PFIZER INC-2010065846

PATIENT
  Age: 93 Year
  Sex: Female

DRUGS (1)
  1. HALCION [Suspect]
     Dosage: 150 MG, SINGLE

REACTIONS (3)
  - OVERDOSE [None]
  - PAIN [None]
  - SUICIDE ATTEMPT [None]
